FAERS Safety Report 7802015-X (Version None)
Quarter: 2011Q4

REPORT INFORMATION
  Report Type: 
  Country: None (occurrence: None)
  Receive Date: 20111007
  Receipt Date: 20111006
  Transmission Date: 20120403
  Serious: Yes (Death, Other)
  Sender: FDA-Public Use
  Company Number: PHHY2011CA86576

PATIENT
  Sex: Female

DRUGS (1)
  1. CLOZAPINE [Suspect]
     Indication: SCHIZOPHRENIA
     Dates: start: 20080501

REACTIONS (4)
  - PSYCHOTIC DISORDER [None]
  - DEATH [None]
  - PARKINSON'S DISEASE [None]
  - DEMENTIA [None]
